FAERS Safety Report 5626605-8 (Version None)
Quarter: 2008Q1

REPORT INFORMATION
  Report Type: 
  Country: None (occurrence: None)
  Receive Date: 20080214
  Receipt Date: 20080204
  Transmission Date: 20080703
  Serious: Yes (Other)
  Sender: FDA-Public Use
  Company Number: US-ELI_LILLY_AND_COMPANY-US200802000944

PATIENT
  Age: 18 Year
  Sex: Male

DRUGS (2)
  1. FLUOXETINE HYDROCHLORIDE [Suspect]
     Indication: ANXIETY
     Dosage: 20 MG, DAILY (1/D)
     Dates: start: 19960101
  2. FLUOXETINE HYDROCHLORIDE [Suspect]
     Dosage: 40 MG, UNK

REACTIONS (6)
  - DRUG INEFFECTIVE [None]
  - EJACULATION DISORDER [None]
  - ERECTILE DYSFUNCTION [None]
  - MEMORY IMPAIRMENT [None]
  - SOMNOLENCE [None]
  - WEIGHT DECREASED [None]
